FAERS Safety Report 13703088 (Version 2)
Quarter: 2017Q3

REPORT INFORMATION
  Report Type: Spontaneous
  Country: US (occurrence: US)
  Receive Date: 20170629
  Receipt Date: 20170802
  Transmission Date: 20171127
  Serious: No
  Sender: FDA-Public Use
  Company Number: US-ASTRAZENECA-2017SE66659

PATIENT
  Sex: Male

DRUGS (3)
  1. BYDUREON [Suspect]
     Active Substance: EXENATIDE
     Route: 065
     Dates: start: 20170623
  2. GLYBURIDE. [Concomitant]
     Active Substance: GLYBURIDE
     Dosage: 2.5MG UNKNOWN
     Route: 065
  3. METFORMIN [Concomitant]
     Active Substance: METFORMIN HYDROCHLORIDE
     Dosage: 1000 MG TWO TIMES A DAYNON AZ
     Route: 065

REACTIONS (1)
  - Blood glucose increased [Not Recovered/Not Resolved]

NARRATIVE: CASE EVENT DATE: 20170624
